FAERS Safety Report 6138443-0 (Version None)
Quarter: 2009Q1

REPORT INFORMATION
  Report Type: 
  Country: None (occurrence: None)
  Receive Date: 20090331
  Receipt Date: 20090227
  Transmission Date: 20090719
  Serious: Yes (Disabling, Other)
  Sender: FDA-Public Use
  Company Number: US-BAYER-200821368NA

PATIENT
  Age: 72 Year
  Sex: Female
  Weight: 63 kg

DRUGS (58)
  1. MAGNEVIST [Suspect]
     Indication: NUCLEAR MAGNETIC RESONANCE IMAGING
     Dates: start: 20050210, end: 20050210
  2. MAGNEVIST [Suspect]
     Dates: start: 20050616, end: 20050616
  3. TAMOXIFEN CITRATE [Concomitant]
     Indication: BREAST CANCER
  4. HYDRALAZINE HCL [Concomitant]
  5. ROCALTROL [Concomitant]
  6. ISOSORBIDE [Concomitant]
  7. ZAROXOLYN [Concomitant]
  8. CARTIA XT [Concomitant]
  9. FUROSEMIDE [Concomitant]
  10. PHOSLO [Concomitant]
     Dosage: AS EARLY AS NOV 2002
  11. NEPHROVITE [Concomitant]
  12. PLAVIX [Concomitant]
  13. COREG [Concomitant]
     Dosage: AS EARLY AS NOV 2002
  14. ALLOPURINOL [Concomitant]
  15. COLCHICINE [Concomitant]
  16. VIOXX [Concomitant]
  17. DIAZEPAM [Concomitant]
  18. ZESTRIL [Concomitant]
  19. CELEBREX [Concomitant]
  20. LISINOPRIL [Concomitant]
  21. RENAGEL [Concomitant]
     Indication: HYPERPHOSPHATAEMIA
     Dosage: 800 MG (4 TABS THREE TIMES DAILY WITH MEALS)
  22. LESCOL [Concomitant]
  23. QUININE SULFATE [Concomitant]
     Indication: MUSCLE SPASMS
     Dosage: 325 MG HS PRN
  24. FOLIC ACID [Concomitant]
  25. SENSIPAR [Concomitant]
     Indication: HYPERPARATHYROIDISM
     Dosage: TOTAL DAILY DOSE: 60 MG  UNIT DOSE: 60 MG
  26. PROTONIX [Concomitant]
  27. METOPROLOL [Concomitant]
  28. ZOCOR [Concomitant]
     Indication: HYPERLIPIDAEMIA
     Dosage: TOTAL DAILY DOSE: 40 MG  UNIT DOSE: 40 MG
  29. DIGOXIN [Concomitant]
     Dosage: 0.125 MG MWF
  30. TRICOR [Concomitant]
     Indication: HYPERLIPIDAEMIA
     Dosage: 48 MG 1 TAB DAILY
  31. NEXIUM [Concomitant]
     Dosage: TOTAL DAILY DOSE: 40 MG  UNIT DOSE: 40 MG
  32. MIDODRINE HYDROCHLORIDE [Concomitant]
     Indication: HYPOTENSION
     Dosage: 10 MG (1 BEFORE DIALYSIS AND 1 AFTER 2 HRS)
  33. COUMADIN [Concomitant]
     Dosage: 2.5 MG QD
  34. HYDROCODONE BITARTRATE + ACETAMINOPHEN [Concomitant]
  35. ZYRTEC [Concomitant]
     Indication: HYPERSENSITIVITY
     Dosage: 5 MG 1 TAB PRN
  36. SIMVASTATIN [Concomitant]
  37. GLYBURIDE [Concomitant]
     Dosage: 1.25 MG 1 TABLET DAILY
  38. SUDAFED 12 HOUR [Concomitant]
     Indication: HYPOTENSION
     Dosage: 60 MG TAB PRN
  39. MOTRIN [Concomitant]
     Indication: MUSCULOSKELETAL PAIN
     Dosage: 400 MG PRN
  40. VICODIN [Concomitant]
     Indication: PAIN
  41. ALBUMIN (HUMAN) [Concomitant]
     Indication: HYPOTENSION
  42. MANNITOL [Concomitant]
     Indication: HYPOTENSION
  43. ACTIVASE [Concomitant]
     Indication: COAGULOPATHY
  44. VASOPRESSIN [Concomitant]
     Indication: HYPOTENSION
  45. TRENTAL [Concomitant]
     Indication: MUSCLE ATROPHY
  46. MICRONASE [Concomitant]
     Indication: DIABETES MELLITUS
  47. FLORINEF [Concomitant]
     Indication: HYPOTENSION
  48. NEURONTIN [Concomitant]
     Indication: NEUROPATHY PERIPHERAL
  49. ALBUTEROL [Concomitant]
     Indication: BRONCHITIS
     Dates: start: 20080401
  50. SODIUM THIOSULFATE [Concomitant]
  51. VENTOLIN [Concomitant]
     Dosage: 2 PUFFS Q8H PRN
     Route: 055
  52. ZEMPLAR [Concomitant]
     Indication: HYPERPARATHYROIDISM SECONDARY
  53. VENOFER [Concomitant]
     Indication: ANAEMIA
  54. EPOGEN [Concomitant]
     Dosage: SINCE AT LEAST NOV 2001
  55. INFED [Concomitant]
     Indication: IRON DEFICIENCY ANAEMIA
     Dosage: AS OF NOV 2002
  56. PRILOSEC [Concomitant]
     Dosage: AS OF NOV 2002
  57. PROVENTIL [Concomitant]
     Dosage: AS OF NOV 2002
  58. LOPRESSOR [Concomitant]
     Indication: ATRIAL FIBRILLATION
     Dosage: DOSE INCREASED TO 50 MG BID (PREVIOUS DOSING UNKNOWN)
     Route: 048
     Dates: start: 20060325

REACTIONS (21)
  - ARTHROPATHY [None]
  - DRY SKIN [None]
  - GAIT DISTURBANCE [None]
  - JOINT CONTRACTURE [None]
  - JOINT RANGE OF MOTION DECREASED [None]
  - MOBILITY DECREASED [None]
  - MUSCLE TIGHTNESS [None]
  - MUSCULAR WEAKNESS [None]
  - MUSCULOSKELETAL STIFFNESS [None]
  - NEPHROGENIC SYSTEMIC FIBROSIS [None]
  - OEDEMA [None]
  - PAIN [None]
  - PITTING OEDEMA [None]
  - PRURITUS GENERALISED [None]
  - RASH PAPULAR [None]
  - SCAR [None]
  - SENSORY LOSS [None]
  - SKIN DISCOLOURATION [None]
  - SKIN INDURATION [None]
  - SKIN TIGHTNESS [None]
  - TENDON DISORDER [None]
